FAERS Safety Report 5407269-5 (Version None)
Quarter: 2007Q3

REPORT INFORMATION
  Report Type: 
  Country: None (occurrence: None)
  Receive Date: 20070807
  Receipt Date: 20070727
  Transmission Date: 20080115
  Serious: Yes (Hospitalization)
  Sender: FDA-Public Use
  Company Number: B0482200A

PATIENT
  Age: 64 Year
  Sex: Female

DRUGS (4)
  1. LAPATINIB [Suspect]
     Dosage: 1250MG PER DAY
     Route: 048
     Dates: start: 20070707, end: 20070718
  2. CAPECITABINE [Suspect]
     Route: 048
     Dates: start: 20070707, end: 20070718
  3. METOCLOPRAMIDE [Concomitant]
     Dosage: 10MG AS REQUIRED
     Route: 042
  4. TEMAZEPAM [Concomitant]
     Route: 048

REACTIONS (2)
  - DIARRHOEA [None]
  - RECTAL HAEMORRHAGE [None]
